FAERS Safety Report 24042907 (Version 1)
Quarter: 2024Q3

REPORT INFORMATION
  Report Type: Spontaneous
  Country: US (occurrence: US)
  Receive Date: 20240702
  Receipt Date: 20240702
  Transmission Date: 20241017
  Serious: Yes (Life-Threatening, Hospitalization, Other)
  Sender: CMP PHARMA
  Company Number: US-CMP PHARMA-2024CMP00035

PATIENT
  Age: 28 Year
  Sex: Male

DRUGS (1)
  1. AMLODIPINE [Suspect]
     Active Substance: AMLODIPINE BESYLATE
     Indication: Suicide attempt
     Route: 048

REACTIONS (3)
  - Suicide attempt [Recovered/Resolved]
  - Shock [Recovered/Resolved]
  - Intentional overdose [Recovered/Resolved]
